FAERS Safety Report 9732012 (Version 4)
Quarter: 2014Q1

REPORT INFORMATION
  Report Type: Spontaneous
  Country: BR (occurrence: BR)
  Receive Date: 20131205
  Receipt Date: 20140312
  Transmission Date: 20141002
  Serious: Yes (Other)
  Sender: FDA-Public Use
  Company Number: BR-JNJFOC-20131200061

PATIENT
  Age: 42 Year
  Sex: Female
  Weight: 86 kg

DRUGS (4)
  1. SIMPONI [Suspect]
     Indication: RHEUMATOID ARTHRITIS
     Route: 058
     Dates: start: 20131009
  2. SIMPONI [Suspect]
     Indication: RHEUMATOID ARTHRITIS
     Route: 058
     Dates: start: 201311
  3. HIGROTON [Concomitant]
     Indication: HYPERTENSION
     Route: 065
  4. OMEPRAZOLE [Concomitant]
     Indication: GASTRIC DISORDER
     Route: 065

REACTIONS (15)
  - Eye swelling [Unknown]
  - Blood pressure increased [Not Recovered/Not Resolved]
  - Muscle spasms [Not Recovered/Not Resolved]
  - Nervousness [Unknown]
  - Emotional disorder [Not Recovered/Not Resolved]
  - Burning sensation [Recovered/Resolved]
  - Insomnia [Recovering/Resolving]
  - Abnormal sensation in eye [Recovering/Resolving]
  - Erythema [Recovered/Resolved]
  - Weight decreased [Unknown]
  - Agitation [Not Recovered/Not Resolved]
  - Nausea [Not Recovered/Not Resolved]
  - Dizziness [Unknown]
  - Malaise [Unknown]
  - Vomiting [Unknown]
